FAERS Safety Report 7673728-8 (Version None)
Quarter: 2011Q3

REPORT INFORMATION
  Report Type: 
  Country: None (occurrence: None)
  Receive Date: 20110810
  Receipt Date: 20110728
  Transmission Date: 20111222
  Serious: No
  Sender: FDA-Public Use
  Company Number: US-B.I. PHARMACEUTICALS,INC./RIDGEFIELD-2011-BP-18728BP

PATIENT
  Age: 7 Decade
  Sex: Female

DRUGS (3)
  1. BASAL INSULIN [Concomitant]
  2. TRADJENTA [Suspect]
     Indication: DIABETES MELLITUS
     Dosage: 5 MG
     Route: 048
  3. SULFONYLUREA [Concomitant]

REACTIONS (1)
  - OEDEMA PERIPHERAL [None]
